FAERS Safety Report 25698038 (Version 1)
Quarter: 2025Q3

REPORT INFORMATION
  Report Type: Spontaneous
  Country: US (occurrence: US)
  Receive Date: 20250819
  Receipt Date: 20250819
  Transmission Date: 20251020
  Serious: No
  Sender: BRISTOL-MYERS SQUIBB COMPANY
  Company Number: US-BRISTOL-MYERS SQUIBB COMPANY-2025-114269

PATIENT
  Age: 72 Year
  Sex: Female

DRUGS (2)
  1. POMALYST [Suspect]
     Active Substance: POMALIDOMIDE
     Indication: Plasma cell myeloma
     Dosage: QD
     Route: 048
     Dates: start: 20250708
  2. POMALYST [Suspect]
     Active Substance: POMALIDOMIDE
     Dosage: 1-21 Q 28 DAYS
     Route: 048

REACTIONS (2)
  - Neutrophil count decreased [Unknown]
  - Neurological symptom [Unknown]

NARRATIVE: CASE EVENT DATE: 20250815
